FAERS Safety Report 25797455 (Version 1)
Quarter: 2025Q3

REPORT INFORMATION
  Report Type: Other
  Country: GB (occurrence: US)
  Receive Date: 20250912
  Receipt Date: 20250912
  Transmission Date: 20251020
  Serious: Yes (Death)
  Sender: ALVOGEN
  Company Number: GB-ALVOGEN-2025098662

PATIENT
  Age: 32 Year
  Sex: Male

DRUGS (2)
  1. FLECAINIDE [Suspect]
     Active Substance: FLECAINIDE
     Indication: Atrial fibrillation
  2. BISOPROLOL [Concomitant]
     Active Substance: BISOPROLOL
     Indication: Atrial fibrillation

REACTIONS (7)
  - Toxicity to various agents [Fatal]
  - Depressed level of consciousness [Fatal]
  - Electrocardiogram abnormal [Fatal]
  - Heart rate irregular [Fatal]
  - Blood pressure systolic decreased [Fatal]
  - Dyspnoea [Fatal]
  - Nausea [Fatal]
